FAERS Safety Report 6389902-7 (Version None)
Quarter: 2009Q4

REPORT INFORMATION
  Report Type: 
  Country: None (occurrence: None)
  Receive Date: 20091006
  Receipt Date: 20090310
  Transmission Date: 20100525
  Serious: No
  Sender: FDA-Public Use
  Company Number: US-BRISTOL-MYERS SQUIBB COMPANY-14542567

PATIENT

DRUGS (1)
  1. AVAPRO [Suspect]

REACTIONS (3)
  - JOINT SWELLING [None]
  - RESTLESS LEGS SYNDROME [None]
  - TINNITUS [None]
